FAERS Safety Report 5468774-9 (Version None)
Quarter: 2007Q3

REPORT INFORMATION
  Report Type: 
  Country: None (occurrence: None)
  Receive Date: 20070926
  Receipt Date: 20070915
  Transmission Date: 20080115
  Serious: Yes (Other)
  Sender: FDA-Public Use
  Company Number: US-PFIZER INC-2007061484

PATIENT
  Sex: Female
  Weight: 75 kg

DRUGS (2)
  1. DILANTIN [Suspect]
     Indication: GRAND MAL CONVULSION
  2. MEBARAL [Concomitant]

REACTIONS (7)
  - ABDOMINAL PAIN UPPER [None]
  - ASTHENIA [None]
  - DIARRHOEA [None]
  - HYPERSOMNIA [None]
  - ORAL INTAKE REDUCED [None]
  - STOMACH DISCOMFORT [None]
  - WEIGHT DECREASED [None]
